FAERS Safety Report 7938861-1 (Version None)
Quarter: 2011Q4

REPORT INFORMATION
  Report Type: 
  Country: None (occurrence: None)
  Receive Date: 20111124
  Receipt Date: 20111121
  Transmission Date: 20120403
  Serious: Yes (Hospitalization)
  Sender: FDA-Public Use
  Company Number: US-BRISTOL-MYERS SQUIBB COMPANY-16241200

PATIENT

DRUGS (1)
  1. ORENCIA [Suspect]
     Indication: RHEUMATOID ARTHRITIS
     Dosage: LAST DOSE OCT11
     Dates: start: 20111001

REACTIONS (3)
  - PANCYTOPENIA [None]
  - RESPIRATORY TRACT INFECTION [None]
  - PNEUMONIA [None]
